FAERS Safety Report 8062570-4 (Version None)
Quarter: 2012Q1

REPORT INFORMATION
  Report Type: 
  Country: None (occurrence: None)
  Receive Date: 20120117
  Receipt Date: 20120110
  Transmission Date: 20120608
  Serious: Yes (Other)
  Sender: FDA-Public Use
  Company Number: CL-371-2012

PATIENT
  Age: 29 Year
  Sex: Female

DRUGS (1)
  1. AMIODARONE HCL [Suspect]
     Indication: TACHYCARDIA
     Dosage: IV/ORAL
     Route: 048

REACTIONS (5)
  - BRUGADA SYNDROME [None]
  - PREGNANCY [None]
  - VENTRICULAR FIBRILLATION [None]
  - VENTRICULAR TACHYCARDIA [None]
  - MATERNAL EXPOSURE DURING PREGNANCY [None]
